FAERS Safety Report 14774014 (Version 3)
Quarter: 2018Q2

REPORT INFORMATION
  Report Type: Report from Study
  Country: PL (occurrence: PL)
  Receive Date: 20180418
  Receipt Date: 20180511
  Transmission Date: 20180711
  Serious: Yes (Hospitalization)
  Sender: FDA-Public Use
  Company Number: PL-EISAI MEDICAL RESEARCH-EC-2018-037995

PATIENT
  Age: 6 Year
  Sex: Male
  Weight: 28.5 kg

DRUGS (4)
  1. PERAMPANEL [Suspect]
     Active Substance: PERAMPANEL
     Route: 048
     Dates: start: 20180417, end: 20180429
  2. PERAMPANEL [Suspect]
     Active Substance: PERAMPANEL
     Route: 048
     Dates: start: 20180411, end: 20180416
  3. PERAMPANEL [Suspect]
     Active Substance: PERAMPANEL
     Indication: GENERALISED TONIC-CLONIC SEIZURE
     Dosage: 4 ML
     Route: 048
     Dates: start: 20171127, end: 20180301
  4. PERAMPANEL [Suspect]
     Active Substance: PERAMPANEL
     Route: 048
     Dates: start: 20180302, end: 20180410

REACTIONS (2)
  - Seizure [Recovered/Resolved]
  - Seizure cluster [Recovered/Resolved]

NARRATIVE: CASE EVENT DATE: 20180405
